FAERS Safety Report 8836017 (Version 1)
Quarter: 2012Q4

REPORT INFORMATION
  Report Type: 
  Country: US (occurrence: US)
  Receive Date: 20121011
  Receipt Date: 20121011
  Transmission Date: 20130627
  Serious: No
  Sender: FDA-Public Use
  Company Number: US-PFIZER INC-2012252522

PATIENT
  Age: 66 Year
  Sex: Female

DRUGS (2)
  1. CHANTIX [Suspect]
     Indication: SMOKING CESSATION THERAPY
     Dosage: 0.5 mg, 1x/day
     Route: 048
     Dates: start: 201208
  2. CHANTIX [Suspect]
     Dosage: 1 mg, 2x/day
     Route: 048

REACTIONS (2)
  - Product packaging issue [Unknown]
  - Nail injury [Unknown]
